FAERS Safety Report 21640094 (Version 1)
Quarter: 2022Q4

REPORT INFORMATION
  Report Type: Report from Study
  Country: US (occurrence: US)
  Receive Date: 20221124
  Receipt Date: 20221124
  Transmission Date: 20230112
  Serious: Yes (Disabling, Other)
  Sender: FDA-Public Use
  Company Number: US-ALLERGAN-2237936US

PATIENT
  Sex: Female
  Weight: 44.905 kg

DRUGS (7)
  1. BIMATOPROST [Suspect]
     Active Substance: BIMATOPROST
     Indication: Glaucoma
     Dosage: 1 GTT, QPM
     Route: 047
     Dates: start: 20221110
  2. BIMATOPROST [Suspect]
     Active Substance: BIMATOPROST
     Dosage: 1 GTT, QPM
     Route: 047
     Dates: start: 2012, end: 20221109
  3. ROSUVASTATIN [Concomitant]
     Active Substance: ROSUVASTATIN
     Indication: Blood cholesterol increased
     Dosage: UNK
  4. AMLODIPINE [Concomitant]
     Active Substance: AMLODIPINE BESYLATE
     Indication: Hypertension
     Dosage: UNK
  5. LEVOTHYROXINE [Concomitant]
     Active Substance: LEVOTHYROXINE
     Indication: Hypothyroidism
     Dosage: UNK
  6. DORZOLAMIDE [Concomitant]
     Active Substance: DORZOLAMIDE
     Indication: Glaucoma
     Dosage: UNK
  7. GENTEAL TEARS [HYPROMELLOSE] [Concomitant]
     Indication: Glaucoma
     Dosage: UNK

REACTIONS (26)
  - Mitral valve stenosis [Recovering/Resolving]
  - Blindness unilateral [Not Recovered/Not Resolved]
  - Orbital infection [Recovered/Resolved]
  - Aortic valve incompetence [Recovering/Resolving]
  - Tooth fracture [Not Recovered/Not Resolved]
  - Neuropathy peripheral [Recovering/Resolving]
  - Hypoaesthesia [Recovering/Resolving]
  - Fall [Recovered/Resolved]
  - Patella fracture [Recovered/Resolved]
  - Asthenia [Recovered/Resolved]
  - Urinary tract infection [Recovering/Resolving]
  - Rhinorrhoea [Recovering/Resolving]
  - Vertigo [Recovered/Resolved]
  - Intentional product misuse [Unknown]
  - Nausea [Recovered/Resolved]
  - Eye swelling [Recovering/Resolving]
  - Eye pain [Recovering/Resolving]
  - Lacrimation increased [Recovering/Resolving]
  - Photophobia [Recovering/Resolving]
  - Eye pruritus [Recovering/Resolving]
  - Eyelids pruritus [Recovering/Resolving]
  - Eye discharge [Recovering/Resolving]
  - Eye allergy [Recovering/Resolving]
  - Dizziness [Recovered/Resolved]
  - Dizziness [Recovered/Resolved]
  - Intraocular pressure increased [Recovered/Resolved]

NARRATIVE: CASE EVENT DATE: 20160101
